FAERS Safety Report 9626246 (Version 1)
Quarter: 2013Q4

REPORT INFORMATION
  Report Type: Spontaneous
  Country: CH (occurrence: CH)
  Receive Date: 20131016
  Receipt Date: 20131016
  Transmission Date: 20140711
  Serious: Yes (Hospitalization)
  Sender: FDA-Public Use
  Company Number: CH-ASTRAZENECA-2013SE74936

PATIENT
  Age: 34 Year
  Sex: Female
  Weight: 75 kg

DRUGS (7)
  1. SEROQUEL XR [Suspect]
     Indication: BIPOLAR DISORDER
     Route: 048
     Dates: start: 2010, end: 201212
  2. SEROQUEL XR [Suspect]
     Indication: BIPOLAR DISORDER
     Route: 048
     Dates: start: 20120914
  3. SEROQUEL XR [Suspect]
     Indication: BIPOLAR DISORDER
     Route: 048
     Dates: start: 20121207
  4. YASMIN [Suspect]
     Indication: ORAL CONTRACEPTION
     Route: 048
     Dates: start: 2005, end: 201212
  5. LITHIOFOR [Concomitant]
     Indication: BIPOLAR DISORDER
     Route: 048
     Dates: start: 201210
  6. SYMBICORT [Concomitant]
     Indication: ASTHMA
     Route: 055
  7. IBUPROFEN [Concomitant]
     Indication: PAIN IN EXTREMITY
     Route: 048

REACTIONS (4)
  - Antiphospholipid syndrome [Recovering/Resolving]
  - Peripheral artery thrombosis [Recovering/Resolving]
  - Peripheral ischaemia [Recovering/Resolving]
  - Skin necrosis [Recovering/Resolving]
